FAERS Safety Report 17553507 (Version 2)
Quarter: 2020Q3

REPORT INFORMATION
  Report Type: Report from Study
  Country: US (occurrence: US)
  Receive Date: 20200318
  Receipt Date: 20200821
  Transmission Date: 20201102
  Serious: Yes (Other)
  Sender: FDA-Public Use
  Company Number: US-TEVA-2020-US-1207540

PATIENT
  Age: 51 Year
  Sex: Female

DRUGS (20)
  1. AUSTEDO [Suspect]
     Active Substance: DEUTETRABENAZINE
     Indication: TARDIVE DYSKINESIA
     Dosage: 18 MILLIGRAM DAILY;
     Route: 048
     Dates: start: 20200131, end: 20200206
  2. AUSTEDO [Suspect]
     Active Substance: DEUTETRABENAZINE
     Dosage: 24 MILLIGRAM DAILY;
     Route: 048
     Dates: start: 20200207, end: 20200227
  3. ATORVASTATIN CALCIUM ORAL TABLET 40MG [Concomitant]
     Route: 048
  4. SEROQUEL ORAL TABLET 100MG [Concomitant]
     Route: 048
  5. POLYETHYLENE GLYCOL 3350 POWDER [Concomitant]
     Active Substance: POLYETHYLENE GLYCOL 3350
  6. CLOTRIMAZOLE BETAMETHASONE EXTERNAL CREAM 1?0.005% [Concomitant]
  7. BREO ELLIPTA INHALATION AEROSOL POWDER BREATH ACTIVATED 200?25MCG [Concomitant]
  8. LITHIUM CARBONATE ORAL CAPSULE 150MG [Concomitant]
     Route: 048
  9. FENOFIBRATE ORAL TABLET 145MG [Concomitant]
     Route: 048
  10. GABAPENTIN ORAL TABLET 600MG [Concomitant]
     Route: 048
  11. FLUOXETINE HCL (PMDD) ORAL CAPSULE 10MG [Concomitant]
     Route: 048
  12. DIAZEPAM ORAL TABLET 5MG [Concomitant]
     Route: 048
  13. LISINOPRIL ORAL TABLET 40MG [Concomitant]
     Route: 048
  14. LATUDA ORAL TABLET 60MG [Concomitant]
     Route: 048
  15. PERCOCET ORAL TABLET 7.5?325MG [Concomitant]
     Route: 048
  16. METFORMIN HCL ORAL TABLET 1000MG [Concomitant]
     Route: 048
  17. CELECOXIB ORAL CAPSULE 200MG [Concomitant]
     Route: 048
  18. FLUTICASONE PROPIONATE NASAL SUSPENSION 50MCG/ACT [Concomitant]
  19. PANTOPRAZOLE SODIUM ORAL TABLET DELAYED RELEASE 40MG [Concomitant]
     Route: 048
  20. JARDIANCE ORAL TABLET 25MG [Concomitant]
     Route: 048

REACTIONS (4)
  - Dyskinesia [Recovered/Resolved]
  - Mood altered [Recovered/Resolved]
  - Irritability [Recovered/Resolved]
  - Dry mouth [Recovered/Resolved]

NARRATIVE: CASE EVENT DATE: 2020
